FAERS Safety Report 8312885-7 (Version None)
Quarter: 2012Q2

REPORT INFORMATION
  Report Type: 
  Country: None (occurrence: None)
  Receive Date: 20120426
  Receipt Date: 20120417
  Transmission Date: 20120825
  Serious: Yes (Hospitalization)
  Sender: FDA-Public Use
  Company Number: US-BAYER-2012-038479

PATIENT
  Age: 20 Year
  Sex: Female

DRUGS (9)
  1. PREDNISONE [Concomitant]
     Dosage: 10 MG, UNK
     Dates: start: 20081020
  2. FLUCONAZOLE [Concomitant]
     Dosage: 150 MG, UNK
     Dates: start: 20081220
  3. AMOXICILLIN AND CLAVULANATE POTASSIUM [Concomitant]
     Dosage: 875 MG, BID
     Dates: start: 20081020
  4. DROSPIRENONE AND ETHINYL ESTRADIOL [Suspect]
  5. YAZ [Suspect]
  6. SULFAMETHOXAZOLE + TRIMETHOPRIM [Concomitant]
     Dosage: UNK
     Dates: start: 20081220
  7. NEXIUM [Concomitant]
     Dosage: 40 MG, QD
     Route: 048
  8. BACTRIM [Concomitant]
     Indication: INGROWING NAIL
  9. CEPHALEXIN [Concomitant]
     Dosage: 500 MG, UNK
     Dates: start: 20081208

REACTIONS (1)
  - PULMONARY EMBOLISM [None]
